FAERS Safety Report 5775612-3 (Version None)
Quarter: 2008Q2

REPORT INFORMATION
  Report Type: 
  Country: None (occurrence: None)
  Receive Date: 20080617
  Receipt Date: 20080606
  Transmission Date: 20081010
  Serious: Yes (Hospitalization)
  Sender: FDA-Public Use
  Company Number: JP-BAXTER-2008BH005981

PATIENT
  Age: 44 Year
  Sex: Male
  Weight: 48 kg

DRUGS (5)
  1. BUMINATE 25% [Suspect]
     Indication: HYPOPROTEINAEMIA
     Route: 042
     Dates: start: 20011221, end: 20011224
  2. MAP (RED BLOOD CELLS) [Concomitant]
     Indication: ANAEMIA
     Dosage: DOSE UNIT:UNKNOWN
     Route: 065
  3. PLATELETS [Concomitant]
     Indication: PLATELET COUNT DECREASED
     Dosage: DOSE UNIT:UNKNOWN
     Route: 065
  4. POLYGLOBULIN N [Concomitant]
     Indication: HYPOGLOBULINAEMIA
     Route: 042
     Dates: start: 20011227, end: 20020209
  5. TACROLIMUS [Concomitant]
     Indication: DRUG USE FOR UNKNOWN INDICATION
     Dosage: DOSE UNIT:UNKNOWN
     Route: 065
     Dates: end: 20030601

REACTIONS (1)
  - HEPATITIS B [None]
